FAERS Safety Report 9847244 (Version 2)
Quarter: 2014Q1

REPORT INFORMATION
  Report Type: Spontaneous
  Country: IT (occurrence: IT)
  Receive Date: 20140127
  Receipt Date: 20140127
  Transmission Date: 20141002
  Serious: Yes (Hospitalization)
  Sender: FDA-Public Use
  Company Number: PHHY2013IT150175

PATIENT
  Age: 22 Month
  Sex: Male

DRUGS (1)
  1. CAPTOPRIL [Suspect]
     Dosage: 25 MG, UNK
     Dates: start: 20131016, end: 20131016

REACTIONS (2)
  - Hypotension [Recovered/Resolved]
  - Medication error [Recovered/Resolved]
